FAERS Safety Report 12035986 (Version 1)
Quarter: 2016Q1

REPORT INFORMATION
  Report Type: Report from Study
  Country: US (occurrence: US)
  Receive Date: 20160207
  Receipt Date: 20160207
  Transmission Date: 20160526
  Serious: No
  Sender: FDA-Public Use
  Company Number: US-ABBVIE-15K-163-1524010-00

PATIENT
  Age: 54 Year
  Sex: Female

DRUGS (1)
  1. HUMIRA [Suspect]
     Active Substance: ADALIMUMAB
     Indication: PSORIATIC ARTHROPATHY
     Route: 058
     Dates: start: 20151202

REACTIONS (8)
  - Peripheral swelling [Unknown]
  - Musculoskeletal stiffness [Unknown]
  - Anxiety [Unknown]
  - Joint swelling [Unknown]
  - Depression [Unknown]
  - Activities of daily living impaired [Unknown]
  - Tenderness [Unknown]
  - Pain [Unknown]

NARRATIVE: CASE EVENT DATE: 201512
